FAERS Safety Report 14984226 (Version 1)
Quarter: 2018Q2

REPORT INFORMATION
  Report Type: Report from Study
  Country: FR (occurrence: FR)
  Receive Date: 20180607
  Receipt Date: 20180607
  Transmission Date: 20180711
  Serious: Yes (Death, Other)
  Sender: FDA-Public Use
  Company Number: FR-JAZZ-2017-FR-016095

PATIENT

DRUGS (1)
  1. DEFITELIO [Suspect]
     Active Substance: DEFIBROTIDE SODIUM
     Indication: PROPHYLAXIS
     Dosage: UNK
     Dates: start: 20151124, end: 20151222

REACTIONS (4)
  - Staphylococcal sepsis [Unknown]
  - Fungal infection [Unknown]
  - Acute myeloid leukaemia recurrent [Fatal]
  - Urinary tract infection bacterial [Unknown]

NARRATIVE: CASE EVENT DATE: 20151230
